FAERS Safety Report 11343383 (Version 3)
Quarter: 2016Q2

REPORT INFORMATION
  Report Type: Spontaneous
  Country: BR (occurrence: BR)
  Receive Date: 20150806
  Receipt Date: 20160505
  Transmission Date: 20160815
  Serious: Yes (Hospitalization, Other)
  Sender: FDA-Public Use
  Company Number: BR-PFIZER INC-2014033892

PATIENT
  Age: 60 Year
  Sex: Male
  Weight: 95 kg

DRUGS (18)
  1. LOSARTAN. [Concomitant]
     Active Substance: LOSARTAN
     Dosage: EVERY 12 HOURS
  2. NIFEDIPINE. [Concomitant]
     Active Substance: NIFEDIPINE
     Dosage: UNK
  3. SPIRONOLACTONE. [Concomitant]
     Active Substance: SPIRONOLACTONE
     Dosage: UNK
  4. INDAPAMIDE. [Concomitant]
     Active Substance: INDAPAMIDE
     Dosage: UNK
  5. SUTENT [Suspect]
     Active Substance: SUNITINIB MALATE
     Dosage: 50 MG, 1X/DAY, CYCLIC, 4X2
     Route: 048
     Dates: start: 20140327, end: 201505
  6. OMEPRAZOLE. [Concomitant]
     Active Substance: OMEPRAZOLE
     Dosage: UNK
  7. OMEGA 3 /01334101/ [Concomitant]
     Active Substance: OMEGA-3 FATTY ACIDS
     Dosage: UNK
  8. ARADOIS [Concomitant]
     Active Substance: LOSARTAN POTASSIUM
     Dosage: UNK
  9. SUTENT [Suspect]
     Active Substance: SUNITINIB MALATE
     Dosage: UNK
     Route: 048
  10. SUTENT [Suspect]
     Active Substance: SUNITINIB MALATE
     Dosage: UNK
  11. ENALAPRIL [Concomitant]
     Active Substance: ENALAPRIL
     Dosage: UNK, 1X/DAY (STRENGTH 0.25 MG)
     Route: 048
     Dates: start: 1996
  12. SUTENT [Suspect]
     Active Substance: SUNITINIB MALATE
     Indication: METASTATIC RENAL CELL CARCINOMA
     Dosage: 50 MG, 1X/DAY (1 CAPSULE); CYCLE 4X2
     Route: 048
     Dates: start: 20131216
  13. SUTENT [Suspect]
     Active Substance: SUNITINIB MALATE
     Dosage: 50 MG, CYCLIC, 4X2
     Route: 048
  14. PRAMIL [Concomitant]
     Dosage: UNK
  15. SUTENT [Suspect]
     Active Substance: SUNITINIB MALATE
     Dosage: UNK
     Route: 048
     Dates: start: 201501
  16. CORUS [Concomitant]
     Active Substance: LOSARTAN POTASSIUM
     Dosage: 1 DF, STRENGTH 50 MG AT 1 UNIT IN THE MORNING AND AT NIGHT
     Route: 048
     Dates: start: 1996
  17. DIVELOL [Concomitant]
     Dosage: UNK, IN THE MORNING AND AT NIGHT (STRENGTH 25 MG)
     Route: 048
     Dates: start: 1996
  18. DIGOXIN. [Concomitant]
     Active Substance: DIGOXIN
     Dosage: UNK, 1X/DAY (STRENGTH 0.25 MG)
     Dates: start: 1996

REACTIONS (30)
  - Suffocation feeling [Recovered/Resolved]
  - Gastric disorder [Recovered/Resolved]
  - Ageusia [Recovered/Resolved]
  - Gait disturbance [Recovered/Resolved]
  - Eyelid oedema [Recovered/Resolved]
  - Back pain [Recovered/Resolved]
  - Skin irritation [Recovered/Resolved]
  - Pulmonary mass [Recovered/Resolved]
  - Rash [Recovered/Resolved]
  - Hydrocele [Recovered/Resolved]
  - Asthenia [Recovered/Resolved]
  - Pallor [Recovered/Resolved]
  - Dyspnoea [Recovered/Resolved]
  - Blood triglycerides abnormal [Unknown]
  - Yellow skin [Recovering/Resolving]
  - Burning sensation [Recovered/Resolved]
  - Dyspepsia [Not Recovered/Not Resolved]
  - Dry mouth [Recovered/Resolved]
  - Throat irritation [Recovered/Resolved]
  - Eyelid irritation [Recovered/Resolved]
  - Hyperthyroidism [Unknown]
  - Lacrimation increased [Recovered/Resolved]
  - Blood creatinine increased [Recovered/Resolved]
  - Pain in extremity [Recovered/Resolved]
  - Influenza [Recovered/Resolved]
  - Blood uric acid increased [Not Recovered/Not Resolved]
  - Hypertensive crisis [Recovered/Resolved]
  - Hepatic steatosis [Recovered/Resolved]
  - Eyelid pain [Recovered/Resolved]
  - Hypothyroidism [Recovered/Resolved]

NARRATIVE: CASE EVENT DATE: 20140305
